FAERS Safety Report 22524656 (Version 1)
Quarter: 2023Q2

REPORT INFORMATION
  Report Type: Spontaneous
  Country: US (occurrence: US)
  Receive Date: 20230606
  Receipt Date: 20230606
  Transmission Date: 20230722
  Serious: Yes (Other)
  Sender: FDA-Public Use
  Company Number: US-002147023-NVSC2023US125111

PATIENT
  Age: 28 Year
  Sex: Female

DRUGS (2)
  1. DABRAFENIB [Suspect]
     Active Substance: DABRAFENIB
     Indication: Glioblastoma multiforme
     Dosage: UNK
     Route: 065
     Dates: start: 201509, end: 202004
  2. TRAMETINIB [Suspect]
     Active Substance: TRAMETINIB
     Indication: Glioblastoma multiforme
     Dosage: UNK
     Route: 065
     Dates: start: 201509, end: 202004

REACTIONS (4)
  - Anaplastic astrocytoma [Unknown]
  - Glioblastoma multiforme [Recovering/Resolving]
  - Malignant neoplasm progression [Recovering/Resolving]
  - Product use in unapproved indication [Unknown]

NARRATIVE: CASE EVENT DATE: 20190101
